FAERS Safety Report 21076001 (Version 1)
Quarter: 2022Q3

REPORT INFORMATION
  Report Type: Spontaneous
  Country: US (occurrence: None)
  Receive Date: 20220713
  Receipt Date: 20220713
  Transmission Date: 20221026
  Serious: Yes (Hospitalization)
  Sender: FDA-Public Use
  Company Number: None

PATIENT
  Age: 74 Year
  Sex: Male
  Weight: 65 kg

DRUGS (4)
  1. FLUOROURACIL [Suspect]
     Active Substance: FLUOROURACIL
     Dates: end: 20220602
  2. CAMPTOSAR [Suspect]
     Active Substance: IRINOTECAN HYDROCHLORIDE
     Dates: end: 20220602
  3. LEUCOVORIN CALCIUM [Suspect]
     Active Substance: LEUCOVORIN CALCIUM
     Dates: end: 20220602
  4. ELOXATIN [Suspect]
     Active Substance: OXALIPLATIN
     Dates: end: 20220602

REACTIONS (10)
  - Chromaturia [None]
  - Liver function test increased [None]
  - Faeces discoloured [None]
  - Pyrexia [None]
  - Fatigue [None]
  - Jaundice [None]
  - Pruritus [None]
  - Device occlusion [None]
  - Cholangitis [None]
  - Anaemia [None]

NARRATIVE: CASE EVENT DATE: 20220624
